FAERS Safety Report 23366583 (Version 1)
Quarter: 2024Q1

REPORT INFORMATION
  Report Type: Spontaneous
  Country: US (occurrence: US)
  Receive Date: 20240104
  Receipt Date: 20240104
  Transmission Date: 20240410
  Serious: Yes (Death, Other)
  Sender: FDA-Public Use
  Company Number: US-SA-SAC20240103000036

PATIENT
  Age: 67 Year
  Sex: Female

DRUGS (21)
  1. TAXOTERE [Suspect]
     Active Substance: DOCETAXEL
     Dosage: UNK
     Route: 065
     Dates: start: 20220930
  2. OBINUTUZUMAB [Concomitant]
     Active Substance: OBINUTUZUMAB
  3. ZOFRAN [Concomitant]
     Active Substance: ONDANSETRON HYDROCHLORIDE
  4. IMODIUM [Concomitant]
     Active Substance: LOPERAMIDE HYDROCHLORIDE
  5. DEXAMETHASONE [Concomitant]
     Active Substance: DEXAMETHASONE
  6. CEFEPIME [Concomitant]
     Active Substance: CEFEPIME HYDROCHLORIDE
  7. METRONIDAZOLE [Concomitant]
     Active Substance: METRONIDAZOLE
  8. CITALOPRAM [Concomitant]
     Active Substance: CITALOPRAM HYDROBROMIDE
  9. PANTOPRAZOLE [Concomitant]
     Active Substance: PANTOPRAZOLE
  10. LISINOPRIL [Concomitant]
     Active Substance: LISINOPRIL
  11. SPIRONOLACTONE [Concomitant]
     Active Substance: SPIRONOLACTONE
  12. ELIQUIS [Concomitant]
     Active Substance: APIXABAN
  13. CALCIUM\CHOLECALCIFEROL [Concomitant]
     Active Substance: CALCIUM\CHOLECALCIFEROL
  14. GABAPENTIN [Concomitant]
     Active Substance: GABAPENTIN
  15. LOPERAMIDE [Concomitant]
     Active Substance: LOPERAMIDE
  16. LEVOTHYROXINE [Concomitant]
     Active Substance: LEVOTHYROXINE
  17. TRAMADOL [Concomitant]
     Active Substance: TRAMADOL\TRAMADOL HYDROCHLORIDE
  18. AMIODARONE [Concomitant]
     Active Substance: AMIODARONE
  19. ASPIRIN [Concomitant]
     Active Substance: ASPIRIN
  20. METOPROLOL [Concomitant]
     Active Substance: METOPROLOL
  21. DENOSUMAB [Concomitant]
     Active Substance: DENOSUMAB

REACTIONS (16)
  - Death [Fatal]
  - Cerebrovascular accident [Unknown]
  - Systemic scleroderma [Recovered/Resolved]
  - Colitis [Recovered/Resolved]
  - Pericardial effusion [Recovered/Resolved]
  - Neutropenia [Recovered/Resolved]
  - Sepsis [Recovered/Resolved]
  - Right ventricular hypertrophy [Recovered/Resolved]
  - Nausea [Recovered/Resolved]
  - Vomiting [Recovered/Resolved]
  - Dehydration [Recovered/Resolved]
  - Hypotension [Recovered/Resolved]
  - Weight decreased [Recovered/Resolved]
  - Pleural effusion [Recovered/Resolved]
  - Hyponatraemia [Unknown]
  - Mucosal inflammation [Recovered/Resolved]

NARRATIVE: CASE EVENT DATE: 20221007
